FAERS Safety Report 8388267-9 (Version None)
Quarter: 2012Q2

REPORT INFORMATION
  Report Type: 
  Country: None (occurrence: None)
  Receive Date: 20120525
  Receipt Date: 20120514
  Transmission Date: 20120825
  Serious: Yes (Other)
  Sender: FDA-Public Use
  Company Number: FR-VALEANT-2012VX002340

PATIENT
  Age: 76 Year
  Sex: Male

DRUGS (21)
  1. ATARAX [Suspect]
     Route: 065
     Dates: start: 20120314
  2. RAMIPRIL [Concomitant]
     Route: 065
  3. MOTILIUM [Concomitant]
     Route: 065
  4. DEBRIDAT [Concomitant]
     Route: 065
  5. LANTUS [Concomitant]
     Route: 065
  6. PROSTIGMIN BROMIDE [Suspect]
     Dosage: DOSE UNIT:0.5
     Route: 065
     Dates: start: 20120315, end: 20120316
  7. EFFEXOR [Suspect]
     Route: 065
     Dates: start: 20120320
  8. LASIX [Concomitant]
     Route: 065
  9. DUPHALAC [Concomitant]
     Route: 065
  10. BRICANYL [Concomitant]
     Route: 065
  11. NEXIUM [Concomitant]
     Route: 065
  12. IMOVANE [Suspect]
     Route: 065
     Dates: start: 20120313
  13. ATROVENT [Concomitant]
     Route: 065
  14. PROCORALAN [Concomitant]
     Route: 065
  15. EFFEXOR [Suspect]
     Route: 065
     Dates: start: 20120316, end: 20120316
  16. PROSTIGMIN BROMIDE [Suspect]
     Dosage: DOSE UNIT:0.5
     Route: 065
     Dates: start: 20120317
  17. INNOVAR [Concomitant]
     Route: 065
  18. ATORVASTATIN [Concomitant]
     Route: 065
  19. CORDARONE [Concomitant]
     Route: 065
  20. ASPIRIN [Concomitant]
     Route: 065
  21. NOVORAPID [Concomitant]
     Route: 065

REACTIONS (3)
  - RASH [None]
  - PURPURA [None]
  - URTICARIA [None]
